FAERS Safety Report 8251456-8 (Version None)
Quarter: 2012Q1

REPORT INFORMATION
  Report Type: 
  Country: None (occurrence: None)
  Receive Date: 20120321
  Receipt Date: 20110906
  Transmission Date: 20120608
  Serious: Yes (Other)
  Sender: FDA-Public Use
  Company Number: 2009020734

PATIENT
  Sex: Female

DRUGS (1)
  1. RHOPHYLAC [Suspect]
     Indication: PROPHYLAXIS AGAINST RH ISOIMMUNISATION
     Dosage: INTRAVENOUS
     Route: 042
     Dates: start: 20090710

REACTIONS (2)
  - DRUG INEFFECTIVE [None]
  - RHESUS ANTIBODIES POSITIVE [None]
